FAERS Safety Report 9098258 (Version 1)
Quarter: 2013Q1

REPORT INFORMATION
  Report Type: Spontaneous
  Country: US (occurrence: US)
  Receive Date: 20130213
  Receipt Date: 20130213
  Transmission Date: 20140127
  Serious: Yes (Hospitalization)
  Sender: FDA-Public Use
  Company Number: US-CELGENEUS-163-20785-13021603

PATIENT
  Age: 83 Year
  Sex: Female
  Weight: 85.81 kg

DRUGS (5)
  1. THALOMID [Suspect]
     Indication: PLASMA CELL MYELOMA
     Dosage: 50 MILLIGRAM
     Route: 048
     Dates: start: 200802
  2. POTASSIUM CHLORIDE [Concomitant]
     Indication: PRODUCT USED FOR UNKNOWN INDICATION
     Dosage: 20 MILLIEQUIVALENTS
     Route: 065
     Dates: start: 20121127
  3. CARBIDOPA / LEVADOPA [Concomitant]
     Indication: PRODUCT USED FOR UNKNOWN INDICATION
     Dosage: 25 / 100MG
     Route: 065
  4. LYRICA [Concomitant]
     Indication: PAIN
     Dosage: 75 MILLIGRAM
     Route: 065
  5. ZOMETA [Concomitant]
     Indication: PRODUCT USED FOR UNKNOWN INDICATION
     Route: 065

REACTIONS (10)
  - Fall [Unknown]
  - Head injury [Unknown]
  - Rhinorrhoea [Unknown]
  - Mental disorder [Unknown]
  - Abdominal pain [Unknown]
  - Cough [Unknown]
  - Pain in extremity [Unknown]
  - Local swelling [Unknown]
  - Constipation [Unknown]
  - Neuropathy peripheral [Unknown]
